FAERS Safety Report 7944122 (Version 3)
Quarter: 2013Q4

REPORT INFORMATION
  Report Type: Report from Study
  Country: BR (occurrence: BR)
  Receive Date: 20110513
  Receipt Date: 20131029
  Transmission Date: 20140711
  Serious: Yes (Hospitalization, Other)
  Sender: FDA-Public Use
  Company Number: BR-ROCHE-708802

PATIENT
  Age: 68 Year
  Sex: Female
  Weight: 50 kg

DRUGS (14)
  1. ACTEMRA [Suspect]
     Indication: RHEUMATOID ARTHRITIS
     Dosage: ROUTE: ENDOVENOUS, FORM: INFUSION
     Route: 042
     Dates: start: 20090917, end: 20090917
  2. ACTEMRA [Suspect]
     Route: 042
     Dates: start: 20091001, end: 20091001
  3. ACTEMRA [Suspect]
     Route: 042
  4. ACTEMRA [Suspect]
     Route: 042
  5. ACTEMRA [Suspect]
     Route: 042
  6. ACTEMRA [Suspect]
     Route: 042
  7. ACTEMRA [Suspect]
     Route: 042
     Dates: start: 201012, end: 201012
  8. ACTEMRA [Suspect]
     Dosage: DATE OF THE MOST RECENT OSE OF INFUSION : 02/DEC/2010
     Route: 042
  9. PREDSIM [Concomitant]
  10. ACETAMINOPHEN [Concomitant]
  11. CAPTOPRIL [Concomitant]
     Indication: HYPERTENSION
  12. ATENOLOL [Concomitant]
     Indication: HYPERTENSION
  13. CORTISONE [Concomitant]
  14. AAS [Concomitant]

REACTIONS (8)
  - Gastroenteritis [Unknown]
  - Gastroenteritis [Unknown]
  - Bedridden [Not Recovered/Not Resolved]
  - Arthropathy [Not Recovered/Not Resolved]
  - Immunodeficiency [Unknown]
  - Therapeutic response decreased [Not Recovered/Not Resolved]
  - Influenza [Not Recovered/Not Resolved]
  - Sinusitis [Recovering/Resolving]
